FAERS Safety Report 5591829-5 (Version None)
Quarter: 2008Q1

REPORT INFORMATION
  Report Type: 
  Country: None (occurrence: None)
  Receive Date: 20080115
  Receipt Date: 20080103
  Transmission Date: 20080703
  Serious: Yes (Death)
  Sender: FDA-Public Use
  Company Number: B0469937A

PATIENT
  Sex: Male

DRUGS (1)
  1. PAROXETINE HYDROCHLORIDE [Suspect]
     Indication: DRUG USE FOR UNKNOWN INDICATION
     Dosage: 20MG SEE DOSAGE TEXT
     Route: 065
     Dates: end: 20020101

REACTIONS (4)
  - ADVERSE EVENT [None]
  - COMPLETED SUICIDE [None]
  - CONDITION AGGRAVATED [None]
  - SOCIAL AVOIDANT BEHAVIOUR [None]
